FAERS Safety Report 9312579 (Version 1)
Quarter: 2013Q2

REPORT INFORMATION
  Report Type: Spontaneous
  Country: FR (occurrence: FR)
  Receive Date: 20130528
  Receipt Date: 20130528
  Transmission Date: 20140414
  Serious: Yes (Death, Other)
  Sender: FDA-Public Use
  Company Number: FR-ABBOTT-13X-056-1095293-00

PATIENT
  Age: 48 Year
  Sex: Male

DRUGS (9)
  1. DEPAKINE CHRONO [Suspect]
     Indication: ACCIDENTAL EXPOSURE TO PRODUCT
     Dosage: EXTENDED RELEASE, 1000 MILLIGRAM(S) ;ONCE
     Route: 048
     Dates: start: 20130430, end: 20130430
  2. OMEPRAZOLE [Suspect]
     Indication: ACCIDENTAL EXPOSURE TO PRODUCT
     Route: 048
     Dates: start: 20130430, end: 20130430
  3. TETRAZEPAM [Suspect]
     Indication: ACCIDENTAL EXPOSURE TO PRODUCT
     Route: 048
     Dates: start: 20130430, end: 20130430
  4. RISPERDAL [Suspect]
     Indication: ACCIDENTAL EXPOSURE TO PRODUCT
     Route: 048
     Dates: start: 20130430, end: 20130430
  5. DEROXAT [Suspect]
     Indication: ACCIDENTAL EXPOSURE TO PRODUCT
     Route: 048
     Dates: start: 20130430, end: 20130430
  6. MIOREL [Concomitant]
     Indication: PRODUCT USED FOR UNKNOWN INDICATION
  7. MOVICOL [Concomitant]
     Indication: PRODUCT USED FOR UNKNOWN INDICATION
  8. THIOCOLCHICOSIDE [Concomitant]
     Indication: PRODUCT USED FOR UNKNOWN INDICATION
  9. MULTIVITAMIN AND MINERAL SUPPLEMENT [Concomitant]
     Indication: PRODUCT USED FOR UNKNOWN INDICATION

REACTIONS (5)
  - Cardiac arrest [Fatal]
  - Pallor [Unknown]
  - Hypotonia [Unknown]
  - Wrong drug administered [Unknown]
  - Wrong drug administered [Unknown]
